FAERS Safety Report 9170587 (Version 2)
Quarter: 2013Q2

REPORT INFORMATION
  Report Type: Spontaneous
  Country: SE (occurrence: SE)
  Receive Date: 20130319
  Receipt Date: 20130419
  Transmission Date: 20140414
  Serious: Yes (Death)
  Sender: FDA-Public Use
  Company Number: SE-NOVOPROD-373037

PATIENT
  Age: 81 Year
  Sex: Female
  Weight: 94 kg

DRUGS (5)
  1. NOVOMIX 30 FLEXPEN [Suspect]
     Indication: DIABETES MELLITUS
     Dosage: 36 IU, QD
     Route: 058
     Dates: start: 20090421
  2. TROMBYL [Concomitant]
     Dosage: 75 MG
     Route: 065
     Dates: start: 20070617
  3. BISOPROLOL [Concomitant]
     Dosage: 10 G
     Route: 065
     Dates: start: 20110626
  4. PLENDIL [Concomitant]
     Indication: HYPERTENSION
     Dosage: 10 MG
     Route: 065
     Dates: start: 20070617
  5. TRITACE [Concomitant]
     Indication: HYPERTENSION
     Dosage: 10 MG
     Route: 065
     Dates: start: 20070617

REACTIONS (1)
  - Aortic aneurysm rupture [Fatal]
